FAERS Safety Report 18307395 (Version 1)
Quarter: 2020Q3

REPORT INFORMATION
  Report Type: Spontaneous
  Country: CA (occurrence: CA)
  Receive Date: 20200924
  Receipt Date: 20200924
  Transmission Date: 20201103
  Serious: Yes (Hospitalization, Other)
  Sender: FDA-Public Use
  Company Number: CA-JNJFOC-A-US2020-206342

PATIENT
  Age: 52 Year
  Sex: Female

DRUGS (1)
  1. ZAVESCA [Suspect]
     Active Substance: MIGLUSTAT
     Indication: GAUCHER^S DISEASE
     Dosage: 100 MG
     Route: 048

REACTIONS (2)
  - Mental impairment [Unknown]
  - Joint injury [Unknown]

NARRATIVE: CASE EVENT DATE: 20200908
